FAERS Safety Report 10038039 (Version 1)
Quarter: 2014Q1

REPORT INFORMATION
  Report Type: Spontaneous
  Country: GB (occurrence: GB)
  Receive Date: 20140326
  Receipt Date: 20140326
  Transmission Date: 20141002
  Serious: Yes (Other)
  Sender: FDA-Public Use
  Company Number: GB-TEVA-468679ISR

PATIENT
  Age: 6 Month
  Sex: Female
  Weight: 10.23 kg

DRUGS (1)
  1. PROPRANOLOL [Suspect]
     Indication: HAEMANGIOMA
     Dosage: 2MG/KG/DAY IN 3 DIVIDED DOSES
     Route: 048
     Dates: start: 20130615, end: 20131230

REACTIONS (3)
  - Sleep terror [Recovered/Resolved]
  - Restlessness [Recovered/Resolved]
  - Drug withdrawal syndrome [Unknown]
